FAERS Safety Report 21304295 (Version 1)
Quarter: 2022Q3

REPORT INFORMATION
  Report Type: Spontaneous
  Country: US (occurrence: None)
  Receive Date: 20220907
  Receipt Date: 20220907
  Transmission Date: 20221027
  Serious: No
  Sender: FDA-Public Use
  Company Number: US-FARMAPROD-202107-1209

PATIENT
  Sex: Male

DRUGS (6)
  1. OXERVATE [Suspect]
     Active Substance: CENEGERMIN-BKBJ
     Indication: Lacrimation decreased
     Route: 047
     Dates: start: 20210713
  2. OXERVATE [Suspect]
     Active Substance: CENEGERMIN-BKBJ
     Indication: Blepharitis
  3. OXERVATE [Suspect]
     Active Substance: CENEGERMIN-BKBJ
     Indication: Neurotrophic keratopathy
  4. TRAZODONE HCL [Concomitant]
     Active Substance: TRAZODONE HYDROCHLORIDE
  5. LORAZEPAM [Concomitant]
     Active Substance: LORAZEPAM
  6. VALSARTAN [Concomitant]
     Active Substance: VALSARTAN

REACTIONS (2)
  - Eye pain [Unknown]
  - Vertigo [Unknown]
